FAERS Safety Report 9584207 (Version 1)
Quarter: 2013Q4

REPORT INFORMATION
  Report Type: Spontaneous
  Country: US (occurrence: US)
  Receive Date: 20131002
  Receipt Date: 20131002
  Transmission Date: 20140711
  Serious: No
  Sender: FDA-Public Use
  Company Number: US-AMGEN-USASP2013051863

PATIENT
  Age: 63 Year
  Sex: Female
  Weight: 97 kg

DRUGS (8)
  1. ENBREL [Suspect]
     Indication: PRODUCT USED FOR UNKNOWN INDICATION
     Dosage: 50 MG, QWK
     Route: 058
     Dates: start: 201304
  2. OMEPRAZOLE [Concomitant]
     Dosage: 10 MG, UNK
  3. CIPRODEX                           /00697202/ [Concomitant]
     Dosage: 0.3- 0.1 %, UNK
  4. CITALOPRAM [Concomitant]
     Dosage: 10 MG, UNK
  5. LEVOTHYROXINE [Concomitant]
     Dosage: 100 MUG, UNK
  6. PRAVASTATIN [Concomitant]
     Dosage: 10 MG, UNK
  7. LOSARTAN POTASSIUM [Concomitant]
     Dosage: 25 MG, UNK
  8. HOMATROPINE/ HYDROCODONE [Concomitant]
     Dosage: UNK

REACTIONS (3)
  - Injection site pruritus [Unknown]
  - Injection site pain [Unknown]
  - Injection site erythema [Unknown]
